FAERS Safety Report 9803917 (Version 6)
Quarter: 2016Q4

REPORT INFORMATION
  Report Type: Report from Study
  Country: US (occurrence: US)
  Receive Date: 20140108
  Receipt Date: 20161216
  Transmission Date: 20170207
  Serious: Yes (Hospitalization, Disabling)
  Sender: FDA-Public Use
  Company Number: US-PFIZER INC-2014001859

PATIENT
  Age: 58 Year
  Sex: Female

DRUGS (11)
  1. FLUOROURACIL. [Suspect]
     Active Substance: FLUOROURACIL
     Indication: COLORECTAL CANCER
     Dosage: 3200 MG/M2, ONCE IN TWO WEEKS
     Route: 042
     Dates: start: 20131001, end: 20131008
  2. MORPHINE [Concomitant]
     Active Substance: MORPHINE
     Dosage: 2 MG, UNK
     Dates: start: 20131003, end: 20131003
  3. DIPHENHYDRAMINE. [Concomitant]
     Active Substance: DIPHENHYDRAMINE
     Dosage: 25 MG, UNK
     Dates: start: 20131003, end: 20131003
  4. HEPARIN [Concomitant]
     Active Substance: HEPARIN SODIUM
     Dosage: 5000 UNITS, UNK
     Dates: start: 20131003, end: 20131003
  5. CALCIUM FOLINATE [Suspect]
     Active Substance: LEUCOVORIN CALCIUM
     Indication: COLORECTAL CANCER
     Dosage: 100 MG/M2, ONCE IN TWO WEEKS
     Route: 042
     Dates: start: 20131001, end: 20131008
  6. HYDROMORPHONE [Concomitant]
     Active Substance: HYDROMORPHONE
     Dosage: 1 MG, UNK
     Dates: start: 20131003, end: 20131003
  7. OXALIPLATIN. [Suspect]
     Active Substance: OXALIPLATIN
     Indication: COLORECTAL CANCER
     Dosage: 85 MG, ONCE IN TWO WEEKS
     Route: 042
     Dates: start: 20131001, end: 20131008
  8. IRINOTECAN HCL [Suspect]
     Active Substance: IRINOTECAN HYDROCHLORIDE
     Indication: COLORECTAL CANCER
     Dosage: 165 MG/M2, ONCE IN TWO WEEKS
     Route: 042
     Dates: start: 20131001, end: 20131008
  9. IOHEXOL [Concomitant]
     Active Substance: IOHEXOL
     Dosage: 90 ML, UNK
     Dates: start: 20131003, end: 20131003
  10. BEVACIZUMAB [Suspect]
     Active Substance: BEVACIZUMAB
     Indication: COLORECTAL CANCER
     Dosage: 5 MG/KG, ONCE IN TWO WEEKS
     Route: 042
     Dates: start: 20131001, end: 20131008
  11. SODIUM CHLORIDE. [Concomitant]
     Active Substance: SODIUM CHLORIDE
     Dosage: BOLUS FROM BAG/ NEW BAG (0.9%)
     Route: 040
     Dates: start: 20131003, end: 20131003

REACTIONS (1)
  - Arteriospasm coronary [Recovered/Resolved]

NARRATIVE: CASE EVENT DATE: 20131003
